FAERS Safety Report 14242864 (Version 1)
Quarter: 2017Q4

REPORT INFORMATION
  Report Type: Report from Study
  Country: US (occurrence: ZA)
  Receive Date: 20171201
  Receipt Date: 20171201
  Transmission Date: 20180321
  Serious: Yes (Death, Other)
  Sender: FDA-Public Use
  Company Number: US-SUNOVION-2017SUN005076

PATIENT
  Age: 75 Year
  Sex: Male

DRUGS (1)
  1. INDACATEROL [Suspect]
     Active Substance: INDACATEROL
     Indication: ASTHMA
     Dosage: 150 ?G, UNK
     Route: 055

REACTIONS (2)
  - Death [Fatal]
  - Product use in unapproved indication [Unknown]

NARRATIVE: CASE EVENT DATE: 201706
